FAERS Safety Report 4713105-2 (Version None)
Quarter: 2005Q3

REPORT INFORMATION
  Report Type: 
  Country: None (occurrence: None)
  Receive Date: 20050701
  Receipt Date: 20041008
  Transmission Date: 20060218
  Serious: Yes (Hospitalization)
  Sender: FDA-Public Use
  Company Number: 2004076198

PATIENT
  Age: 41 Year
  Sex: Male

DRUGS (3)
  1. ZOLOFT [Suspect]
     Indication: ILL-DEFINED DISORDER
  2. BUPROPION HYDROCHLORIDE [Suspect]
     Indication: DEPRESSION
     Dosage: 450 MG (1 IN 1 D), ORAL
     Route: 048
     Dates: start: 20040401, end: 20040901
  3. OXCARBAZEPINE (OXCARBAZEPINE) [Suspect]
     Indication: ILL-DEFINED DISORDER

REACTIONS (9)
  - APATHY [None]
  - DRUG INEFFECTIVE [None]
  - INTENTIONAL MISUSE [None]
  - OVERDOSE [None]
  - PHARMACEUTICAL PRODUCT COMPLAINT [None]
  - SLEEP DISORDER [None]
  - STOOL ANALYSIS ABNORMAL [None]
  - SUICIDE ATTEMPT [None]
  - THINKING ABNORMAL [None]
